FAERS Safety Report 15451423 (Version 1)
Quarter: 2018Q3

REPORT INFORMATION
  Report Type: Spontaneous
  Country: US (occurrence: US)
  Receive Date: 20180927
  Receipt Date: 20180927
  Transmission Date: 20181010
  Serious: No
  Sender: FDA-Public Use
  Company Number: None

PATIENT
  Age: 52 Year
  Sex: Female
  Weight: 56.7 kg

DRUGS (1)
  1. AIMOVIG [Suspect]
     Active Substance: ERENUMAB-AOOE
     Indication: MIGRAINE
     Dosage: ?          QUANTITY:1 INJECTION(S);OTHER FREQUENCY:MONTH;?
     Route: 058
     Dates: start: 20180925

REACTIONS (6)
  - Nausea [None]
  - Headache [None]
  - Dizziness [None]
  - Mobility decreased [None]
  - Influenza like illness [None]
  - Insomnia [None]

NARRATIVE: CASE EVENT DATE: 20180926
